FAERS Safety Report 4997779-7 (Version None)
Quarter: 2006Q2

REPORT INFORMATION
  Report Type: 
  Country: None (occurrence: None)
  Receive Date: 20060510
  Receipt Date: 20060405
  Transmission Date: 20061013
  Serious: Yes (Other)
  Sender: FDA-Public Use
  Company Number: FRWYE537306APR06

PATIENT
  Age: 62 Year
  Sex: Female

DRUGS (6)
  1. ENBREL [Suspect]
     Indication: RHEUMATOID ARTHRITIS
     Dosage: UNKNOWN
     Route: 058
     Dates: start: 20041201, end: 20051201
  2. CORTICOSTEROID NOS [Concomitant]
     Dosage: UNKNOWN
     Route: 065
  3. BREXIN [Concomitant]
     Route: 065
  4. ACETAMINOPHEN [Concomitant]
     Route: 065
  5. MOPRAL [Concomitant]
     Route: 065
  6. ACTONEL [Concomitant]
     Route: 065

REACTIONS (3)
  - DRUG ERUPTION [None]
  - LEUKOCYTOCLASTIC VASCULITIS [None]
  - PRURITUS [None]
